FAERS Safety Report 9517236 (Version 1)
Quarter: 2013Q3

REPORT INFORMATION
  Report Type: Spontaneous
  Country: US (occurrence: US)
  Receive Date: 20130911
  Receipt Date: 20130911
  Transmission Date: 20140515
  Serious: Yes (Other)
  Sender: FDA-Public Use
  Company Number: US-BAYER-2013-109356

PATIENT
  Age: 23 Year
  Sex: Male
  Weight: 124.26 kg

DRUGS (7)
  1. BAYER ASPIRIN REGIMEN ADULT LOW STRENGTH [Suspect]
     Indication: PRODUCT USED FOR UNKNOWN INDICATION
     Dosage: 2 DF, PRN
     Route: 048
  2. MULTIVITAMIN [Suspect]
     Dosage: UNK
     Route: 048
     Dates: start: 2013
  3. LAMICTAL [Concomitant]
  4. DEPAKOTE [Concomitant]
  5. TOPAMAX [Concomitant]
  6. PEPCID AC [Concomitant]
  7. OXYCODONE W/PARACETAMOL [Concomitant]

REACTIONS (5)
  - Haemorrhage [Not Recovered/Not Resolved]
  - Muscle tightness [Recovered/Resolved]
  - Pain in extremity [Not Recovered/Not Resolved]
  - Abdominal pain upper [Not Recovered/Not Resolved]
  - Hyperchlorhydria [Not Recovered/Not Resolved]
